FAERS Safety Report 5023286-1 (Version None)
Quarter: 2006Q2

REPORT INFORMATION
  Report Type: 
  Country: None (occurrence: None)
  Receive Date: 20060612
  Receipt Date: 20060605
  Transmission Date: 20061013
  Serious: Yes (Hospitalization, Other)
  Sender: FDA-Public Use
  Company Number: US-JNJFOC-20060601784

PATIENT
  Sex: Male
  Weight: 81.65 kg

DRUGS (1)
  1. DURAGESIC-100 [Suspect]
     Indication: PAIN
     Route: 062

REACTIONS (4)
  - ASTHENIA [None]
  - BRONCHITIS [None]
  - ENCEPHALITIS [None]
  - PNEUMONIA STAPHYLOCOCCAL [None]
